FAERS Safety Report 18932491 (Version 3)
Quarter: 2021Q3

REPORT INFORMATION
  Report Type: Report from Study
  Country: PL (occurrence: PL)
  Receive Date: 20210224
  Receipt Date: 20210721
  Transmission Date: 20211014
  Serious: Yes (Other)
  Sender: FDA-Public Use
  Company Number: PL-ROCHE-2773017

PATIENT
  Age: 76 Year
  Sex: Female
  Weight: 69 kg

DRUGS (5)
  1. VINCRISTINE [Suspect]
     Active Substance: VINCRISTINE
     Indication: MANTLE CELL LYMPHOMA
     Dosage: ADMINISTERED IN 3 WEEK CYCLES FOR 8 CYCLES
     Route: 065
     Dates: start: 20181016, end: 20190312
  2. DOXORUBICIN [Suspect]
     Active Substance: DOXORUBICIN
     Indication: MANTLE CELL LYMPHOMA
     Dosage: ADMINISTERED IN 3 WEEK CYCLES FOR 8 CYCLES
     Route: 065
     Dates: start: 20181016, end: 20190312
  3. RITUXIMAB. [Suspect]
     Active Substance: RITUXIMAB
     Indication: MANTLE CELL LYMPHOMA
     Dosage: ADMINISTERED IN 3 WEEK CYCLES FOR 8 CYCLES
     Route: 065
     Dates: start: 20181016, end: 20190312
  4. CYCLOPHOSPHAMIDE. [Suspect]
     Active Substance: CYCLOPHOSPHAMIDE
     Indication: MANTLE CELL LYMPHOMA
     Dosage: ADMINISTERED IN 3 WEEK CYCLES FOR 8 CYCLES
     Route: 065
     Dates: start: 20181016, end: 20190312
  5. PREDNISONE. [Suspect]
     Active Substance: PREDNISONE
     Indication: MANTLE CELL LYMPHOMA
     Dosage: ADMINISTERED IN 3 WEEK CYCLES FOR 8 CYCLES
     Route: 065
     Dates: start: 20181016, end: 20190312

REACTIONS (1)
  - Gastrointestinal stromal tumour [Recovered/Resolved]

NARRATIVE: CASE EVENT DATE: 20190425
